FAERS Safety Report 4366250-8 (Version None)
Quarter: 2004Q2

REPORT INFORMATION
  Report Type: 
  Country: None (occurrence: None)
  Receive Date: 20040527
  Receipt Date: 20040517
  Transmission Date: 20050107
  Serious: Yes (Hospitalization, Other)
  Sender: FDA-Public Use
  Company Number: US-JNJFOC-20040503667

PATIENT
  Age: 68 Year
  Sex: Female
  Weight: 68.27 kg

DRUGS (15)
  1. NATRECOR [Suspect]
     Dosage: CONTINUOUS INFUSION
     Route: 042
  2. NATRECOR [Suspect]
     Dosage: BOLUS DOSE
     Route: 042
  3. PHENERGAN [Concomitant]
  4. PLAVIX [Concomitant]
  5. VALIUM [Concomitant]
  6. SINEMET [Concomitant]
  7. SINEMET [Concomitant]
  8. LANTUS [Concomitant]
  9. LIPITOR [Concomitant]
  10. ASPIRIN [Concomitant]
  11. LASIX [Concomitant]
  12. NITROGLYCERIN [Concomitant]
  13. ELAVIL [Concomitant]
  14. TOPROLOL [Concomitant]
  15. LOVENOX [Concomitant]

REACTIONS (7)
  - BLISTER [None]
  - COMPARTMENT SYNDROME [None]
  - INJECTION SITE DISCOLOURATION [None]
  - INJECTION SITE EXTRAVASATION [None]
  - INJECTION SITE SWELLING [None]
  - INJECTION SITE VESICLES [None]
  - SKIN DISCOLOURATION [None]
